FAERS Safety Report 6858661 (Version 4)
Quarter: 2025Q2

REPORT INFORMATION
  Report Type: Spontaneous
  Country: CA (occurrence: CA)
  Receive Date: 20081218
  Receipt Date: 20250601
  Transmission Date: 20250717
  Serious: Yes (Life-Threatening, Other)
  Sender: JOHNSON AND JOHNSON
  Company Number: CA-JNJFOC-20081203534

PATIENT
  Age: 15 Year
  Sex: Female

DRUGS (4)
  1. METHYLPHENIDATE [Suspect]
     Active Substance: METHYLPHENIDATE
     Indication: Attention deficit hyperactivity disorder
     Route: 065
     Dates: start: 200811, end: 20081211
  2. IBUPROFEN [Suspect]
     Active Substance: IBUPROFEN
     Indication: Product used for unknown indication
     Route: 065
  3. VICKS NYQUIL [Suspect]
     Active Substance: ACETAMINOPHEN\DEXTROMETHORPHAN HYDROBROMIDE\DOXYLAMINE SUCCINATE
     Indication: Product used for unknown indication
     Route: 065
  4. SYNTHROID [Concomitant]
     Active Substance: LEVOTHYROXINE SODIUM
     Indication: Product used for unknown indication
     Route: 065

REACTIONS (10)
  - Self-destructive behaviour [Unknown]
  - Overdose [Unknown]
  - Suicide attempt [Unknown]
  - Sleep disorder [Recovered/Resolved]
  - Therapeutic response changed [Unknown]
  - Intentional self-injury [Unknown]
  - Therapeutic response unexpected [Unknown]
  - Morbid thoughts [Unknown]
  - Mydriasis [Unknown]
  - Somnolence [Unknown]

NARRATIVE: CASE EVENT DATE: 20081203
